FAERS Safety Report 9333894 (Version 1)
Quarter: 2013Q2

REPORT INFORMATION
  Report Type: Spontaneous
  Country: JP (occurrence: JP)
  Receive Date: 20130606
  Receipt Date: 20130606
  Transmission Date: 20140414
  Serious: Yes (Hospitalization)
  Sender: FDA-Public Use
  Company Number: JP-CUBIST PHARMACEUTICAL, INC.-2013CBST000295

PATIENT
  Sex: Male

DRUGS (3)
  1. CUBICIN [Suspect]
     Indication: SEPSIS
     Dosage: 6 MG, QD
     Route: 041
     Dates: start: 201303, end: 201303
  2. CUBICIN [Suspect]
     Indication: OFF LABEL USE
  3. VANCOMYCIN [Suspect]
     Indication: SEPSIS
     Dosage: UNK, TIW
     Dates: start: 201303, end: 201303

REACTIONS (1)
  - Red man syndrome [Recovered/Resolved]
